FAERS Safety Report 22692208 (Version 13)
Quarter: 2024Q4

REPORT INFORMATION
  Report Type: Spontaneous
  Country: US (occurrence: US)
  Receive Date: 20230711
  Receipt Date: 20241115
  Transmission Date: 20250114
  Serious: Yes (Other)
  Sender: PFIZER
  Company Number: US-PFIZER INC-202300243808

PATIENT
  Age: 79 Year
  Sex: Female
  Weight: 73.94 kg

DRUGS (12)
  1. DOFETILIDE [Suspect]
     Active Substance: DOFETILIDE
     Dosage: 250 UG
  2. TOPROL XL [Concomitant]
     Active Substance: METOPROLOL SUCCINATE
     Indication: Hypertension
     Dosage: 25 MG, 2X/DAY (FOOTBALL SHAPED TINY PILL, TAKES 1 TWICE A DAY)
     Route: 048
     Dates: start: 2004
  3. PRADAXA [Concomitant]
     Active Substance: DABIGATRAN ETEXILATE MESYLATE
     Indication: Anticoagulant therapy
     Dosage: 75 MG, 2X/DAY, (75MG, CAPSULE, ONE TWICE A DAY)
     Dates: start: 2004
  4. PRADAXA [Concomitant]
     Active Substance: DABIGATRAN ETEXILATE MESYLATE
     Indication: Hypertension
  5. PRADAXA [Concomitant]
     Active Substance: DABIGATRAN ETEXILATE MESYLATE
     Indication: Cerebrovascular accident prophylaxis
  6. JANUVIA [Concomitant]
     Active Substance: SITAGLIPTIN PHOSPHATE
     Indication: Diabetes mellitus
     Dosage: 50MG TABLET, ONE TABLET ONCE A DAY
     Dates: start: 2020
  7. POTASSIUM [Concomitant]
     Active Substance: POTASSIUM
     Indication: Therapeutic procedure
     Dosage: 20MG, EXTENDED RELEASE, ONE BIG TABLET A DAY
     Dates: start: 2005
  8. FLORIDRAL [Concomitant]
     Indication: Polyuria
     Dosage: UNK
  9. ROSUVASTATIN [Concomitant]
     Active Substance: ROSUVASTATIN
     Indication: Blood cholesterol abnormal
     Dosage: 10MG LITTLE ROUND PILL, CONFIRMED TABLET, ONE A DAY
  10. FUROSEMIDE [Concomitant]
     Active Substance: FUROSEMIDE
     Indication: Diuretic therapy
     Dosage: 80MG TABLET, ONE TABLET A DAY
     Dates: start: 2005
  11. OXAZEPAM [Concomitant]
     Active Substance: OXAZEPAM
     Indication: Sleep disorder
     Dosage: 30MG, LITTLE PURPLE CAPLET, ONE AT NIGHT
     Dates: start: 2004
  12. LUTEIN [Concomitant]
     Active Substance: LUTEIN
     Indication: Macular degeneration
     Dosage: 20MG, OVER THE COUNTER, LITTLE GEL FOOTBALL

REACTIONS (14)
  - Cardiac flutter [Unknown]
  - Atrioventricular block [Unknown]
  - Drug ineffective [Unknown]
  - Migraine [Unknown]
  - Vertigo [Unknown]
  - Fatigue [Unknown]
  - Anxiety [Unknown]
  - Dizziness [Unknown]
  - Asthenia [Unknown]
  - Malaise [Unknown]
  - Feeling hot [Unknown]
  - Pain [Unknown]
  - Feeling abnormal [Unknown]
  - Extrasystoles [Unknown]
